FAERS Safety Report 11676992 (Version 1)
Quarter: 2015Q4

REPORT INFORMATION
  Report Type: Spontaneous
  Country: FR (occurrence: FR)
  Receive Date: 20151028
  Receipt Date: 20151028
  Transmission Date: 20160304
  Serious: Yes (Hospitalization)
  Sender: FDA-Public Use
  Company Number: FR-TEVA-602894ISR

PATIENT
  Age: 79 Year
  Sex: Female

DRUGS (15)
  1. REQUIP [Suspect]
     Active Substance: ROPINIROLE HYDROCHLORIDE
     Indication: PARKINSON^S DISEASE
     Dosage: 3 DOSAGE FORMS DAILY; AT NIGHT
     Route: 048
     Dates: end: 20150713
  2. REQUIP [Suspect]
     Active Substance: ROPINIROLE HYDROCHLORIDE
     Dosage: 2 DOSAGE FORMS DAILY;
     Route: 048
     Dates: start: 20150713, end: 20150720
  3. LANSOPRAZOLE. [Concomitant]
     Active Substance: LANSOPRAZOLE
     Dosage: 30 MILLIGRAM DAILY;
     Route: 048
  4. LANTUS [Concomitant]
     Active Substance: INSULIN GLARGINE
     Route: 058
  5. PREVISCAN 20 MG [Concomitant]
     Active Substance: FLUINDIONE
     Dosage: .75 DOSAGE FORMS DAILY;
     Route: 048
  6. AZILECT [Suspect]
     Active Substance: RASAGILINE MESYLATE
     Indication: PARKINSON^S DISEASE
     Dosage: 1 DOSAGE FORMS DAILY;
     Route: 048
     Dates: start: 20150713, end: 20150720
  7. NAFTIDROFURYL [Concomitant]
     Active Substance: NAFRONYL
     Dosage: 80 MILLIGRAM DAILY;
     Route: 048
  8. LEVOTHYROX [Concomitant]
     Active Substance: LEVOTHYROXINE
     Dosage: 25 MICROGRAM DAILY;
     Route: 048
  9. MODOPAR [Suspect]
     Active Substance: BENSERAZIDE HYDROCHLORIDE\LEVODOPA
     Indication: PARKINSON^S DISEASE
     Dosage: 1 DF IN THE NOON AND 1 DF AT 08:00 P.M
     Route: 048
  10. MIANSERIN 10 MG [Suspect]
     Active Substance: MIANSERIN
     Dosage: 1 DOSAGE FORMS DAILY;
     Route: 048
     Dates: start: 20150713, end: 20150720
  11. MODOPAR [Suspect]
     Active Substance: BENSERAZIDE HYDROCHLORIDE\LEVODOPA
     Dosage: 1 DF AT 08:00 A.M AND 1 DF AT 04:00 P.M
     Route: 048
  12. JANUVIA [Concomitant]
     Active Substance: SITAGLIPTIN PHOSPHATE
     Dosage: 1 DOSAGE FORMS DAILY;
     Route: 048
     Dates: start: 20150713, end: 20150720
  13. LEVOTHYROX [Concomitant]
     Active Substance: LEVOTHYROXINE
     Dosage: 75 MICROGRAM DAILY;
     Route: 048
  14. GUTRON 2.5 MG [Suspect]
     Active Substance: MIDODRINE
     Indication: HYPOTENSION
     Dosage: 2 DOSAGE FORMS DAILY;
     Route: 048
     Dates: start: 20150713
  15. HYDROCORTISONE 10 MG [Concomitant]
     Dosage: 3 DOSAGE FORMS DAILY; 2 DF IN THE MORNING AND 1 DF IN THE EVENING
     Route: 048

REACTIONS (4)
  - Renal failure [Recovered/Resolved]
  - Delirium [Recovered/Resolved]
  - Agitation [Recovered/Resolved]
  - Hallucination, visual [Recovered/Resolved]

NARRATIVE: CASE EVENT DATE: 20150716
